FAERS Safety Report 8482337-2 (Version None)
Quarter: 2012Q3

REPORT INFORMATION
  Report Type: 
  Country: None (occurrence: None)
  Receive Date: 20120702
  Receipt Date: 20120626
  Transmission Date: 20120928
  Serious: Yes (Hospitalization)
  Sender: FDA-Public Use
  Company Number: US-SANOFI-AVENTIS-2012SA039163

PATIENT
  Age: 82 Year
  Sex: Female
  Weight: 76.8 kg

DRUGS (7)
  1. PLACEBO [Suspect]
     Indication: MACULAR DEGENERATION
     Dates: start: 20120322
  2. FOSAMAX [Concomitant]
     Dates: start: 19970101
  3. AMBIEN [Suspect]
     Indication: INSOMNIA
     Route: 048
     Dates: start: 20100101
  4. TRICOR [Concomitant]
     Dates: start: 19920101
  5. TRAZODONE HCL [Concomitant]
     Dates: start: 20100101
  6. LIPITOR [Concomitant]
     Dates: start: 19920101
  7. LISINOPRIL [Concomitant]
     Dates: start: 20110101

REACTIONS (2)
  - SYNCOPE [None]
  - ACUTE PRERENAL FAILURE [None]
